FAERS Safety Report 8908726 (Version 2)
Quarter: 2012Q4

REPORT INFORMATION
  Report Type: 
  Country: US (occurrence: US)
  Receive Date: 20121114
  Receipt Date: 20121205
  Transmission Date: 20130627
  Serious: No
  Sender: FDA-Public Use
  Company Number: US-PFIZER INC-2012281360

PATIENT
  Age: 18 Year
  Sex: Male
  Weight: 47.16 kg

DRUGS (14)
  1. GENOTROPIN MQ [Suspect]
     Indication: SMALL STATURE
     Dosage: 2 mg, daily
     Dates: start: 201006
  2. LISINOPRIL [Concomitant]
     Indication: HEART DISEASE CONGENITAL
     Dosage: 2.5 mg, daily
  3. ASPIRIN [Concomitant]
     Indication: HEART DISEASE CONGENITAL
     Dosage: 81 mg, daily
  4. SENOKOT [Concomitant]
     Dosage: UNK, daily
  5. GUAIFENESIN [Concomitant]
     Dosage: 10 mg, daily
  6. LETROZOLE [Concomitant]
     Dosage: 2.5 mg, daily
  7. VITAMIN D3 [Concomitant]
     Dosage: 1000 IU, 2x/day
  8. SEROQUEL [Concomitant]
     Dosage: 1000 mg, daily
  9. SYNTHROID [Concomitant]
     Dosage: 0.1 mg, UNK
  10. NASONEX [Concomitant]
     Dosage: UNK, 2x/day
  11. PULMICORT [Concomitant]
     Dosage: UNK, 2x/day
  12. STRATTERA [Concomitant]
     Indication: ATTENTION DEFICIT-HYPERACTIVITY DISORDER
     Dosage: 20 mg in morning and 40mg at lunch,2x/day
  13. SINGULAIR [Concomitant]
     Dosage: 10 mg, daily
  14. METHYLPHENIDATE HYDROCHLORIDE [Concomitant]
     Indication: ATTENTION DEFICIT/HYPERACTIVITY DISORDER
     Dosage: UNK

REACTIONS (2)
  - Anger [Not Recovered/Not Resolved]
  - Irritability [Not Recovered/Not Resolved]
